FAERS Safety Report 17480137 (Version 1)
Quarter: 2020Q1

REPORT INFORMATION
  Report Type: Spontaneous
  Country: KR (occurrence: KR)
  Receive Date: 20200228
  Receipt Date: 20200228
  Transmission Date: 20200409
  Serious: Yes (Hospitalization, Other)
  Sender: FDA-Public Use
  Company Number: KR-TAKEDA-2020TUS011380

PATIENT

DRUGS (2)
  1. KYNTELES [Suspect]
     Active Substance: VEDOLIZUMAB
     Indication: CROHN^S DISEASE
  2. KYNTELES [Suspect]
     Active Substance: VEDOLIZUMAB
     Indication: COLITIS ULCERATIVE
     Dosage: UNK
     Route: 065

REACTIONS (10)
  - Headache [Unknown]
  - Skin lesion [Unknown]
  - Dizziness [Unknown]
  - Adverse event [Unknown]
  - Arthralgia [Unknown]
  - Pyrexia [Unknown]
  - Inflammatory bowel disease [Unknown]
  - Myalgia [Unknown]
  - Nausea [Unknown]
  - Nasopharyngitis [Unknown]
